FAERS Safety Report 21311566 (Version 1)
Quarter: 2022Q3

REPORT INFORMATION
  Report Type: Spontaneous
  Country: US (occurrence: US)
  Receive Date: 20220909
  Receipt Date: 20220909
  Transmission Date: 20221026
  Serious: No
  Sender: FDA-Public Use
  Company Number: US-AMGEN-USASP2022155982

PATIENT
  Sex: Female

DRUGS (6)
  1. OTEZLA [Suspect]
     Active Substance: APREMILAST
     Indication: Psoriasis
     Dosage: 30 MILLIGRAM, BID
     Route: 048
     Dates: start: 20180628
  2. BETAMETHASONE [Concomitant]
     Active Substance: BETAMETHASONE
     Route: 065
  3. CLOBETASOL [Concomitant]
     Active Substance: CLOBETASOL
     Dosage: 0.05 PERCENT
     Route: 065
  4. CLOBEX [Concomitant]
     Active Substance: CLOBETASOL PROPIONATE
     Dosage: 0.05 PERCENT
     Route: 065
  5. LEVOTHYROXINE SODIUM [Concomitant]
     Active Substance: LEVOTHYROXINE SODIUM
     Dosage: 75 MICROGRAM
     Route: 065
  6. ROSUVASTATIN [Concomitant]
     Active Substance: ROSUVASTATIN

REACTIONS (1)
  - Psoriasis [Unknown]
